FAERS Safety Report 11404107 (Version 1)
Quarter: 2015Q3

REPORT INFORMATION
  Report Type: Spontaneous
  Country: FR (occurrence: FR)
  Receive Date: 20150821
  Receipt Date: 20150821
  Transmission Date: 20151125
  Serious: Yes (Life-Threatening)
  Sender: FDA-Public Use
  Company Number: FR-TEVA-586732ISR

PATIENT
  Age: 69 Year
  Sex: Male

DRUGS (6)
  1. VERAPAMIL [Suspect]
     Active Substance: VERAPAMIL HYDROCHLORIDE
     Indication: SUPRAVENTRICULAR TACHYCARDIA
     Dosage: 120 MILLIGRAM DAILY; ONE TIME DOSE
     Route: 048
     Dates: start: 20150627, end: 20150627
  2. CORGARD [Suspect]
     Active Substance: NADOLOL
     Indication: SUPRAVENTRICULAR TACHYCARDIA
     Dosage: 100 MILLIGRAM DAILY;
     Route: 048
     Dates: end: 20150627
  3. LASILIX [Concomitant]
     Active Substance: FUROSEMIDE
     Dosage: 40 MILLIGRAM DAILY; ONGOING
  4. CORGARD [Suspect]
     Active Substance: NADOLOL
     Dosage: 100 MILLIGRAM DAILY; ONGOING
     Route: 048
     Dates: start: 20150630
  5. PERINDOPRIL ZYDUS [Concomitant]
     Dosage: 4 MILLIGRAM DAILY; ONGOING
  6. PREVISCAN [Concomitant]
     Active Substance: FLUINDIONE
     Dosage: ONGOING

REACTIONS (2)
  - Cardiogenic shock [Recovered/Resolved]
  - Abdominal pain [Recovered/Resolved]

NARRATIVE: CASE EVENT DATE: 20150627
